FAERS Safety Report 10025823 (Version 2)
Quarter: 2014Q1

REPORT INFORMATION
  Report Type: Spontaneous
  Country: CA (occurrence: CA)
  Receive Date: 20140320
  Receipt Date: 20140320
  Transmission Date: 20141002
  Serious: Yes (Disabling)
  Sender: FDA-Public Use
  Company Number: CA-GE HEALTHCARE MEDICAL DIAGNOSTICS-OSCN-PR-0704S-0173

PATIENT
  Age: 29 Year
  Sex: Male

DRUGS (7)
  1. OMNISCAN [Suspect]
     Indication: FISTULOGRAM
     Route: 042
     Dates: start: 20050105, end: 20050105
  2. OMNISCAN [Suspect]
     Route: 042
     Dates: start: 20050829, end: 20050829
  3. GADOLINIUM (UNSPECIFIED) [Suspect]
     Indication: FISTULOGRAM
     Route: 042
     Dates: start: 20051118, end: 20051118
  4. GADOLINIUM (UNSPECIFIED) [Suspect]
     Route: 042
     Dates: start: 20060116, end: 20060116
  5. GADOLINIUM (UNSPECIFIED) [Suspect]
     Route: 042
     Dates: start: 20060303, end: 20060303
  6. GADOLINIUM (UNSPECIFIED) [Suspect]
     Route: 042
     Dates: start: 20060317, end: 20060317
  7. GADOLINIUM (UNSPECIFIED) [Suspect]
     Route: 042
     Dates: start: 20060719, end: 20060719

REACTIONS (1)
  - Nephrogenic systemic fibrosis [Not Recovered/Not Resolved]
